FAERS Safety Report 8090338 (Version 8)
Quarter: 2013Q4

REPORT INFORMATION
  Report Type: Spontaneous
  Country: US (occurrence: US)
  Receive Date: 20110815
  Receipt Date: 20131126
  Transmission Date: 20140711
  Serious: Yes (Hospitalization, Other)
  Sender: FDA-Public Use
  Company Number: PHHY2011US70589

PATIENT
  Age: 45 Year
  Sex: Male

DRUGS (3)
  1. DICLOFENAC [Suspect]
  2. CEFTRIAXONE [Suspect]
     Indication: PYREXIA
  3. LOXOPROFEN [Suspect]
     Indication: PYREXIA

REACTIONS (5)
  - Acquired haemophilia [Unknown]
  - Epistaxis [Unknown]
  - Activated partial thromboplastin time prolonged [Recovered/Resolved]
  - Rash pruritic [Unknown]
  - Blister [Unknown]
